FAERS Safety Report 24034302 (Version 1)
Quarter: 2024Q3

REPORT INFORMATION
  Report Type: Spontaneous
  Country: GB (occurrence: GB)
  Receive Date: 20240701
  Receipt Date: 20240701
  Transmission Date: 20241017
  Serious: Yes (Other)
  Sender: Teyro Labs
  Company Number: GB-TEYRO-2024-TY-000207

PATIENT
  Age: 10 Day

DRUGS (2)
  1. CARBOPLATIN [Suspect]
     Active Substance: CARBOPLATIN
     Indication: Retinoblastoma
     Dosage: MEAN DOSE FOR THE FIRST THREE CYCLES WHEN TRANSFUSIONS WERE REQUIRED WAS 320 MG/M2
     Route: 065
  2. CARBOPLATIN [Suspect]
     Active Substance: CARBOPLATIN
     Dosage: MEAN DOSE FOR THE 515 MG/M2 FOR THE FINAL THREE CYCLES
     Route: 065

REACTIONS (2)
  - Therapy partial responder [Unknown]
  - Off label use [Unknown]
